FAERS Safety Report 12632005 (Version 2)
Quarter: 2016Q3

REPORT INFORMATION
  Report Type: Spontaneous
  Country: US (occurrence: US)
  Receive Date: 20160808
  Receipt Date: 20160808
  Transmission Date: 20161109
  Serious: No
  Sender: FDA-Public Use
  Company Number: US-BEH-2016061651

PATIENT
  Sex: Female
  Weight: 85 kg

DRUGS (22)
  1. IRON [Concomitant]
     Active Substance: IRON
  2. HIZENTRA [Suspect]
     Active Substance: HUMAN IMMUNOGLOBULIN G
     Indication: HYPOGAMMAGLOBULINAEMIA
     Route: 058
     Dates: start: 20140908
  3. TUMS [Concomitant]
     Active Substance: CALCIUM CARBONATE
  4. KEFLEX [Concomitant]
     Active Substance: CEPHALEXIN
  5. PREDNISONE. [Concomitant]
     Active Substance: PREDNISONE
  6. DIPHENHYDRAMINE. [Concomitant]
     Active Substance: DIPHENHYDRAMINE
  7. FLUOXETINE [Concomitant]
     Active Substance: FLUOXETINE HYDROCHLORIDE
  8. SODIUM CHLORIDE. [Concomitant]
     Active Substance: SODIUM CHLORIDE
  9. CALCITROL [Concomitant]
     Active Substance: CALCITRIOL
  10. LANSOPRAZOLE. [Concomitant]
     Active Substance: LANSOPRAZOLE
  11. GLYBURIDE. [Concomitant]
     Active Substance: GLYBURIDE
  12. VITAMIN D [Concomitant]
     Active Substance: CHOLECALCIFEROL
  13. LIDOCAINE. [Concomitant]
     Active Substance: LIDOCAINE
  14. HYDROCODONE [Concomitant]
     Active Substance: HYDROCODONE
  15. LORAZEPAM. [Concomitant]
     Active Substance: LORAZEPAM
  16. ABILIFY [Concomitant]
     Active Substance: ARIPIPRAZOLE
  17. ACETAMINOPHEN. [Concomitant]
     Active Substance: ACETAMINOPHEN
  18. EPIPEN [Concomitant]
     Active Substance: EPINEPHRINE
  19. METOPROLOL. [Concomitant]
     Active Substance: METOPROLOL
  20. LYRICA [Concomitant]
     Active Substance: PREGABALIN
  21. MULTIVITAMIN [Concomitant]
     Active Substance: VITAMINS
  22. CALCIUM [Concomitant]
     Active Substance: CALCIUM

REACTIONS (1)
  - Ear infection [Unknown]
